FAERS Safety Report 24998965 (Version 2)
Quarter: 2025Q2

REPORT INFORMATION
  Report Type: Spontaneous
  Country: US (occurrence: US)
  Receive Date: 20250222
  Receipt Date: 20250407
  Transmission Date: 20250717
  Serious: No
  Sender: SANOFI AVENTIS
  Company Number: US-SA-2025SA044973

PATIENT
  Age: 57 Year
  Sex: Female

DRUGS (3)
  1. DUPIXENT [Suspect]
     Active Substance: DUPILUMAB
     Indication: Asthma
     Route: 058
     Dates: start: 202408, end: 202408
  2. DUPIXENT [Suspect]
     Active Substance: DUPILUMAB
     Indication: Chronic obstructive pulmonary disease
     Dosage: 300 MG, QOW
     Route: 058
     Dates: start: 2024
  3. OHTUVAYRE [Concomitant]
     Active Substance: ENSIFENTRINE

REACTIONS (11)
  - Sleep disorder [Unknown]
  - Dizziness [Recovered/Resolved]
  - Fall [Unknown]
  - Contusion [Unknown]
  - Inflammation [Unknown]
  - Blood sodium decreased [Unknown]
  - Rib fracture [Unknown]
  - Impaired quality of life [Unknown]
  - Respiration abnormal [Unknown]
  - Dyspnoea [Recovering/Resolving]
  - Incorrect dose administered [Unknown]

NARRATIVE: CASE EVENT DATE: 20240801
